FAERS Safety Report 14021237 (Version 3)
Quarter: 2017Q4

REPORT INFORMATION
  Report Type: Spontaneous
  Country: SE (occurrence: SE)
  Receive Date: 20170928
  Receipt Date: 20171005
  Transmission Date: 20180321
  Serious: Yes (Other)
  Sender: FDA-Public Use
  Company Number: SE-PFIZER INC-2017412595

PATIENT
  Age: 75 Year
  Sex: Female

DRUGS (1)
  1. OESTRING [Suspect]
     Active Substance: ESTRADIOL
     Dosage: UNK

REACTIONS (5)
  - Weight increased [Not Recovered/Not Resolved]
  - Intentional product misuse [Unknown]
  - Pollakiuria [Not Recovered/Not Resolved]
  - Hypertension [Unknown]
  - Cerebral thrombosis [Unknown]

NARRATIVE: CASE EVENT DATE: 2017
